FAERS Safety Report 17675941 (Version 2)
Quarter: 2020Q2

REPORT INFORMATION
  Report Type: Report from Study
  Country: None (occurrence: NL)
  Receive Date: 20200416
  Receipt Date: 20200515
  Transmission Date: 20200714
  Serious: Yes (Hospitalization, Other)
  Sender: FDA-Public Use
  Company Number: NL-ABBVIE-20K-114-3365727-00

PATIENT
  Sex: Male

DRUGS (3)
  1. DUODOPA [Suspect]
     Active Substance: CARBIDOPA\LEVODOPA
     Indication: PARKINSON^S DISEASE
     Dosage: MD: 12.0, CD: 3.0, ED: 3.0, CND: 3.0
     Route: 050
     Dates: start: 20180806
  2. DORMICUM [Concomitant]
     Indication: PRODUCT USED FOR UNKNOWN INDICATION
  3. MORPHINE [Concomitant]
     Active Substance: MORPHINE
     Indication: PRODUCT USED FOR UNKNOWN INDICATION

REACTIONS (3)
  - Hip fracture [Recovering/Resolving]
  - Fall [Recovered/Resolved]
  - Parkinson^s disease [Unknown]
